FAERS Safety Report 11287249 (Version 1)
Quarter: 2015Q3

REPORT INFORMATION
  Report Type: Report from Study
  Country: GB (occurrence: GB)
  Receive Date: 20150721
  Receipt Date: 20150721
  Transmission Date: 20151125
  Serious: Yes (Other)
  Sender: FDA-Public Use
  Company Number: GB-AMGEN-GBRNI2015072002

PATIENT
  Age: 9 Year
  Sex: Female
  Weight: 34.5 kg

DRUGS (3)
  1. ETANERCEPT [Suspect]
     Active Substance: ETANERCEPT
     Dosage: 12.5 MG, 2 TIMES/WK
     Route: 058
     Dates: start: 20100702
  2. CYCLOPENTOLATE [Concomitant]
     Active Substance: CYCLOPENTOLATE
     Dosage: UNK UNK, BID
     Route: 047
     Dates: start: 20040501
  3. ETANERCEPT [Suspect]
     Active Substance: ETANERCEPT
     Indication: JUVENILE IDIOPATHIC ARTHRITIS
     Dosage: 5.5 MG, 2 TIMES/WK
     Route: 058
     Dates: start: 20031219, end: 2010

REACTIONS (3)
  - Uveitis [Recovering/Resolving]
  - Uveitis [Recovering/Resolving]
  - Condition aggravated [Recovering/Resolving]

NARRATIVE: CASE EVENT DATE: 20100803
